FAERS Safety Report 6871545-X (Version None)
Quarter: 2010Q3

REPORT INFORMATION
  Report Type: 
  Country: None (occurrence: None)
  Receive Date: 20100723
  Receipt Date: 20100713
  Transmission Date: 20110219
  Serious: Yes (Other)
  Sender: FDA-Public Use
  Company Number: PHHY2010CA45424

PATIENT
  Sex: Male

DRUGS (1)
  1. EXTAVIA [Suspect]
     Indication: RELAPSING-REMITTING MULTIPLE SCLEROSIS
     Dosage: 2.3 MIU, QOD
     Route: 058
     Dates: start: 20100707

REACTIONS (2)
  - OROPHARYNGEAL PAIN [None]
  - PHARYNGEAL OEDEMA [None]
